FAERS Safety Report 12527034 (Version 1)
Quarter: 2016Q3

REPORT INFORMATION
  Report Type: Spontaneous
  Country: JP (occurrence: JP)
  Receive Date: 20160705
  Receipt Date: 20160705
  Transmission Date: 20161109
  Serious: Yes (Hospitalization, Other)
  Sender: FDA-Public Use
  Company Number: JP-GLAXOSMITHKLINE-JP2016JPN003386

PATIENT
  Age: 75 Year
  Sex: Female
  Weight: 55 kg

DRUGS (6)
  1. VALTREX [Suspect]
     Active Substance: VALACYCLOVIR HYDROCHLORIDE
     Indication: BENIGN FAMILIAL PEMPHIGUS
     Dosage: UNK
     Route: 048
  2. UNKNOWN DRUG [Concomitant]
     Active Substance: UNSPECIFIED INGREDIENT
     Indication: BENIGN FAMILIAL PEMPHIGUS
     Dosage: UNK
  3. VALTREX [Suspect]
     Active Substance: VALACYCLOVIR HYDROCHLORIDE
     Indication: GENITAL HERPES
     Dosage: 500 MG, 1D
     Route: 048
     Dates: start: 20160101
  4. VALTREX [Suspect]
     Active Substance: VALACYCLOVIR HYDROCHLORIDE
     Dosage: 1000 MG, TID
     Route: 048
     Dates: start: 20160106, end: 20160111
  5. ERYTHROCIN [Concomitant]
     Active Substance: ERYTHROMYCIN LACTOBIONATE
     Indication: BENIGN FAMILIAL PEMPHIGUS
     Dosage: UNK
  6. TALION (JAPAN) [Concomitant]
     Active Substance: BEPOTASTINE
     Indication: BENIGN FAMILIAL PEMPHIGUS

REACTIONS (7)
  - Renal impairment [Recovered/Resolved]
  - Nausea [Unknown]
  - Vulvovaginal pain [Unknown]
  - Renal disorder [Recovered/Resolved]
  - Genital herpes [Unknown]
  - Vulvar erosion [Unknown]
  - Decreased appetite [Unknown]

NARRATIVE: CASE EVENT DATE: 20160109
